FAERS Safety Report 13434252 (Version 2)
Quarter: 2017Q3

REPORT INFORMATION
  Report Type: Spontaneous
  Country: GB (occurrence: GB)
  Receive Date: 20170413
  Receipt Date: 20170803
  Transmission Date: 20171127
  Serious: Yes (Hospitalization, Disabling, Other)
  Sender: FDA-Public Use
  Company Number: GB-TEVA-756584ACC

PATIENT
  Age: 45 Year
  Sex: Female
  Weight: 63.5 kg

DRUGS (4)
  1. GABAPENTIN. [Suspect]
     Active Substance: GABAPENTIN
     Indication: SHOULDER OPERATION
     Route: 048
  2. PROPRANOLOL [Concomitant]
     Active Substance: PROPRANOLOL HYDROCHLORIDE
     Dosage: 160 MILLIGRAM DAILY;
  3. PREDNISOLONE. [Concomitant]
     Active Substance: PREDNISOLONE
     Dosage: 40 MILLIGRAM DAILY;
  4. GABAPENTIN. [Suspect]
     Active Substance: GABAPENTIN
     Indication: SHOULDER OPERATION
     Dosage: 2000MG+ A DAY
     Route: 048
     Dates: start: 2005

REACTIONS (22)
  - Ageusia [Not Recovered/Not Resolved]
  - Lymphadenopathy [Unknown]
  - Anxiety [Unknown]
  - Ear congestion [Unknown]
  - Urinary incontinence [Unknown]
  - Disorientation [Not Recovered/Not Resolved]
  - Vision blurred [Unknown]
  - Bursitis [Unknown]
  - Anosmia [Not Recovered/Not Resolved]
  - Confusional state [Not Recovered/Not Resolved]
  - Urine odour abnormal [Unknown]
  - Crying [Unknown]
  - Somnambulism [Recovered/Resolved with Sequelae]
  - Enuresis [Unknown]
  - Sleep talking [Recovered/Resolved with Sequelae]
  - Drug dependence [Unknown]
  - Amnesia [Not Recovered/Not Resolved]
  - Anger [Not Recovered/Not Resolved]
  - Aggression [Unknown]
  - Aphonia [Recovered/Resolved]
  - Depression [Unknown]
  - Skin discolouration [Unknown]

NARRATIVE: CASE EVENT DATE: 2006
